FAERS Safety Report 25930021 (Version 1)
Quarter: 2025Q4

REPORT INFORMATION
  Report Type: Spontaneous
  Country: US (occurrence: US)
  Receive Date: 20251016
  Receipt Date: 20251016
  Transmission Date: 20260117
  Serious: Yes (Death, Other)
  Sender: INCYTE
  Company Number: US-INCYTE CORPORATION-2025IN011385

PATIENT
  Age: 72 Year

DRUGS (1)
  1. JAKAFI [Suspect]
     Active Substance: RUXOLITINIB
     Indication: Complications of bone marrow transplant
     Dosage: 10 MILLIGRAM, BID

REACTIONS (2)
  - Pneumonia [Fatal]
  - Off label use [Unknown]
